FAERS Safety Report 14330785 (Version 1)
Quarter: 2017Q4

REPORT INFORMATION
  Report Type: Spontaneous
  Country: US (occurrence: US)
  Receive Date: 20171228
  Receipt Date: 20171228
  Transmission Date: 20180321
  Serious: Yes (Life-Threatening)
  Sender: FDA-Public Use
  Company Number: US-PHARMACEUTICS INTERNATIONAL, INC. (PII)-2017PII000011

PATIENT

DRUGS (1)
  1. POTASSIUM CHLORIDE USP [Suspect]
     Active Substance: POTASSIUM CHLORIDE
     Indication: HYPOKALAEMIA
     Dosage: UNK
     Route: 042

REACTIONS (3)
  - Arrhythmia [Unknown]
  - Circulatory collapse [Unknown]
  - Hyperkalaemia [Unknown]
